FAERS Safety Report 8268994-4 (Version None)
Quarter: 2012Q2

REPORT INFORMATION
  Report Type: 
  Country: None (occurrence: None)
  Receive Date: 20120409
  Receipt Date: 20120330
  Transmission Date: 20120825
  Serious: Yes (Hospitalization)
  Sender: FDA-Public Use
  Company Number: DE-JNJFOC-20120307807

PATIENT
  Sex: Male
  Weight: 80 kg

DRUGS (5)
  1. RIVAROXABAN [Suspect]
     Indication: ATRIAL FIBRILLATION
     Route: 048
     Dates: start: 20120124, end: 20120308
  2. OLMESARTAN MEDOXOMIL [Concomitant]
  3. DRONEDARONE HCL [Concomitant]
  4. RIVAROXABAN [Suspect]
     Indication: TRANSIENT ISCHAEMIC ATTACK
     Route: 048
     Dates: start: 20120124, end: 20120308
  5. SIMVASTATIN [Concomitant]

REACTIONS (3)
  - DIZZINESS [None]
  - FALL [None]
  - CIRCULATORY COLLAPSE [None]
